FAERS Safety Report 21774926 (Version 1)
Quarter: 2022Q4

REPORT INFORMATION
  Report Type: Spontaneous
  Country: US (occurrence: US)
  Receive Date: 20221224
  Receipt Date: 20221224
  Transmission Date: 20230113
  Serious: Yes (Death, Other)
  Sender: FDA-Public Use
  Company Number: US-drreddys-LIT/USA/22/0158798

PATIENT
  Age: 82 Year
  Sex: Male

DRUGS (2)
  1. DEXAMETHASONE SODIUM PHOSPHATE [Suspect]
     Active Substance: DEXAMETHASONE SODIUM PHOSPHATE
     Indication: Haemophagocytic lymphohistiocytosis
     Dosage: PRIOR HLH DIRECTED THERAPY
  2. ANAKINRA [Suspect]
     Active Substance: ANAKINRA
     Indication: Haemophagocytic lymphohistiocytosis
     Route: 058

REACTIONS (2)
  - Death [Fatal]
  - Drug ineffective for unapproved indication [Unknown]
